FAERS Safety Report 24663632 (Version 2)
Quarter: 2024Q4

REPORT INFORMATION
  Report Type: Report from Study
  Country: CA (occurrence: CA)
  Receive Date: 20241126
  Receipt Date: 20241210
  Transmission Date: 20250115
  Serious: Yes (Other)
  Sender: ABBVIE
  Company Number: CA-ABBVIE-6010948

PATIENT
  Age: 79 Year
  Sex: Female

DRUGS (3)
  1. OZURDEX [Suspect]
     Active Substance: DEXAMETHASONE
     Indication: Noninfective chorioretinitis
     Dosage: TIME INTERVAL: AS NECESSARY: FREQUENCY: 6 MONTHS
     Route: 047
     Dates: start: 20230303, end: 20230303
  2. OZURDEX [Suspect]
     Active Substance: DEXAMETHASONE
     Dosage: TIME INTERVAL: AS NECESSARY: FREQUENCY: 6 MONTHS
     Route: 047
     Dates: start: 20240510, end: 20240510
  3. COMBIGAN [Suspect]
     Active Substance: BRIMONIDINE TARTRATE\TIMOLOL MALEATE
     Indication: Glaucoma
     Route: 047
     Dates: start: 20240802, end: 20241101

REACTIONS (9)
  - Eye infection [Unknown]
  - Eye inflammation [Unknown]
  - Visual impairment [Unknown]
  - Swelling face [Unknown]
  - Retinitis [Unknown]
  - Vasculitis [Unknown]
  - Eye pain [Unknown]
  - Uveitis [Unknown]
  - Drug hypersensitivity [Unknown]

NARRATIVE: CASE EVENT DATE: 20240101
